FAERS Safety Report 6114311-5 (Version None)
Quarter: 2009Q1

REPORT INFORMATION
  Report Type: 
  Country: None (occurrence: None)
  Receive Date: 20090312
  Receipt Date: 20081222
  Transmission Date: 20090719
  Serious: No
  Sender: FDA-Public Use
  Company Number: US-ABBOTT-08P-163-0494414-00

PATIENT
  Sex: Male

DRUGS (5)
  1. DEPAKOTE [Suspect]
     Indication: CONVULSION
     Dates: start: 19810101, end: 20081210
  2. DEPAKOTE [Suspect]
     Route: 048
     Dates: start: 20081219
  3. DIVALPROEX SODIUM [Suspect]
     Indication: DRUG USE FOR UNKNOWN INDICATION
     Route: 048
     Dates: start: 20081210, end: 20081219
  4. KEPPRA [Concomitant]
     Indication: DRUG USE FOR UNKNOWN INDICATION
  5. KLONOPIN [Concomitant]
     Indication: DRUG USE FOR UNKNOWN INDICATION

REACTIONS (4)
  - DRUG LEVEL DECREASED [None]
  - FALL [None]
  - LACERATION [None]
  - TREMOR [None]
